FAERS Safety Report 10534231 (Version 2)
Quarter: 2014Q4

REPORT INFORMATION
  Report Type: Report from Study
  Country: TW (occurrence: TW)
  Receive Date: 20141022
  Receipt Date: 20141204
  Transmission Date: 20150529
  Serious: Yes (Other)
  Sender: FDA-Public Use
  Company Number: PHHY2014TW137530

PATIENT
  Age: 30 Year
  Sex: Male
  Weight: 94 kg

DRUGS (89)
  1. NEORAL [Suspect]
     Active Substance: CYCLOSPORINE
     Dosage: 100 MG, Q12H
     Route: 048
     Dates: start: 20111213
  2. AMOXICILLIN. [Concomitant]
     Active Substance: AMOXICILLIN
     Indication: PRODUCT USED FOR UNKNOWN INDICATION
     Dosage: 500 MG, TID
     Route: 048
     Dates: start: 20120305, end: 20120305
  3. AUGMENTINE [Concomitant]
     Active Substance: AMOXICILLIN\CLAVULANATE POTASSIUM
     Dosage: 1 DF, BID
     Route: 048
     Dates: start: 20140712, end: 20140715
  4. AUGMENTIN FORTE ORAL [Concomitant]
     Indication: INFECTION PROPHYLAXIS
     Dosage: 1 DF, BID
     Route: 048
     Dates: start: 20120419, end: 20120423
  5. DOXABEN [Concomitant]
     Active Substance: DOXAZOSIN MESYLATE
     Indication: HYPERTENSION
     Dosage: 2 MG, QN
     Route: 048
     Dates: start: 20140708, end: 20140808
  6. LUCKYHEPA [Concomitant]
     Indication: CHRONIC HEPATITIS C
     Dosage: 1 DF, BID
     Route: 048
     Dates: start: 20110513, end: 20110909
  7. OXACILLIN [Concomitant]
     Active Substance: OXACILLIN SODIUM
     Dosage: 2000 MG, Q6H
     Route: 042
     Dates: start: 20140710, end: 20140712
  8. SUBACILLIN [Concomitant]
     Indication: PRODUCT USED FOR UNKNOWN INDICATION
     Dosage: 1.5 G, Q8H
     Route: 042
     Dates: start: 20140520, end: 20140526
  9. SUPERGEL [Concomitant]
     Indication: PROPHYLAXIS
     Dosage: 1 DF, BID
     Route: 048
     Dates: start: 20110830
  10. NEORAL [Suspect]
     Active Substance: CYCLOSPORINE
     Dosage: 100 MG, UNK
     Route: 048
     Dates: start: 20120316
  11. NEORAL [Suspect]
     Active Substance: CYCLOSPORINE
     Dosage: 100 MG, UNK
     Route: 048
     Dates: start: 20130917
  12. ALLEGRA [Concomitant]
     Active Substance: FEXOFENADINE HYDROCHLORIDE
     Indication: PRODUCT USED FOR UNKNOWN INDICATION
     Dosage: 180 MG, QD
     Route: 048
     Dates: start: 20120810, end: 20120822
  13. AUGMENTINE [Concomitant]
     Active Substance: AMOXICILLIN\CLAVULANATE POTASSIUM
     Indication: PRODUCT USED FOR UNKNOWN INDICATION
     Dosage: 1 DF, Q12H
     Route: 048
     Dates: start: 20111207, end: 20111215
  14. CURAM [Concomitant]
     Active Substance: AMOXICILLIN\CLAVULANATE POTASSIUM
     Indication: PRODUCT USED FOR UNKNOWN INDICATION
     Dosage: 1.2 G, Q8H
     Route: 042
     Dates: start: 20140704, end: 20140708
  15. GALVUS MET [Concomitant]
     Active Substance: METFORMIN HYDROCHLORIDE\VILDAGLIPTIN
     Indication: TYPE 2 DIABETES MELLITUS
     Dosage: 1 DF, BID
     Route: 048
     Dates: start: 20130118, end: 20140520
  16. LOXOL//AMBROXOL HYDROCHLORIDE [Concomitant]
     Indication: PRODUCT USED FOR UNKNOWN INDICATION
     Dosage: 75 MG, QD
     Route: 048
     Dates: start: 20140520, end: 20140525
  17. NEUROTON [Concomitant]
     Indication: PRODUCT USED FOR UNKNOWN INDICATION
     Dosage: 600 MG, PRN
     Route: 048
     Dates: start: 20120709, end: 20120709
  18. NYSTATIN. [Concomitant]
     Active Substance: NYSTATIN
     Indication: INFECTION PROPHYLAXIS
     Dosage: 500000 U, QID
     Route: 048
     Dates: start: 20110908, end: 20110909
  19. PARMASON [Concomitant]
     Indication: INFECTION PROPHYLAXIS
     Dosage: UNK
     Route: 049
     Dates: start: 20110905, end: 20120811
  20. ROSIS [Concomitant]
     Indication: HYPERTENSION
     Dosage: 40 MG, BID
     Route: 048
     Dates: start: 20110429
  21. NEORAL [Suspect]
     Active Substance: CYCLOSPORINE
     Indication: PRODUCT USED FOR UNKNOWN INDICATION
     Dosage: 200 MG, QD
     Route: 048
     Dates: start: 20110413
  22. AUGCIN [Concomitant]
     Indication: INFECTION PROPHYLAXIS
     Dosage: 1 DF, Q8H
     Route: 042
     Dates: start: 20111204, end: 20111207
  23. AUGCIN [Concomitant]
     Dosage: 1 DF, Q8H
     Route: 042
     Dates: start: 20120810, end: 20120817
  24. BROWN MIXTURE                      /01682301/ [Concomitant]
     Indication: PROPHYLAXIS
     Dosage: 10 ML, QID
     Route: 048
     Dates: start: 20111204, end: 20111207
  25. CONLIFU [Concomitant]
     Dosage: UNK
     Route: 061
     Dates: start: 20121002, end: 20121025
  26. FLAGYL [Concomitant]
     Active Substance: METRONIDAZOLE\METRONIDAZOLE HYDROCHLORIDE
     Indication: INFECTION PROPHYLAXIS
     Dosage: 500 MG, TID
     Route: 048
     Dates: start: 20120417, end: 20120423
  27. FUSIDIC ACID [Concomitant]
     Active Substance: FUSIDIC ACID
     Indication: PRODUCT USED FOR UNKNOWN INDICATION
     Route: 065
     Dates: start: 20140527, end: 20140708
  28. LESCOL [Concomitant]
     Active Substance: FLUVASTATIN SODIUM
     Indication: HYPERLIPIDAEMIA
     Dosage: 80 MG, QN
     Route: 048
     Dates: start: 20110920, end: 20120720
  29. MUCOSOLVAN [Concomitant]
     Active Substance: AMBROXOL\CLENBUTEROL
     Dosage: 30 MG, QID
     Route: 048
     Dates: start: 20120821, end: 20120904
  30. PARMASON [Concomitant]
     Dosage: UNK
     Route: 049
     Dates: start: 20140705, end: 20140718
  31. NEORAL [Suspect]
     Active Substance: CYCLOSPORINE
     Dosage: 150 MG, UNK
     Route: 048
     Dates: start: 20110908
  32. ACERTIL [Concomitant]
     Indication: HYPERTENSION
     Dosage: 1 DF, QD
     Route: 048
     Dates: start: 20140708, end: 20140808
  33. AUGCIN [Concomitant]
     Dosage: 1200 G, Q8H
     Route: 042
     Dates: start: 20131217, end: 20131219
  34. AUGMENTINE [Concomitant]
     Active Substance: AMOXICILLIN\CLAVULANATE POTASSIUM
     Dosage: 1 DF, BID
     Route: 048
     Dates: start: 20120706, end: 20120708
  35. CAPOTIL [Concomitant]
     Indication: HYPERTENSION
     Dosage: 25 MG, TID
     Route: 048
     Dates: start: 20120417, end: 20120423
  36. LOXOL//AMBROXOL HYDROCHLORIDE [Concomitant]
     Dosage: 75 MG, QD
     Route: 048
     Dates: start: 20140422, end: 20140429
  37. LUCKYHEPA [Concomitant]
     Dosage: 1 DF, TID
     Route: 048
     Dates: start: 20121221
  38. NASONEX [Concomitant]
     Active Substance: MOMETASONE FUROATE
     Indication: PROPHYLAXIS
     Dosage: 1 DF, QD
     Route: 065
     Dates: start: 20121221, end: 20121221
  39. NEORAL [Suspect]
     Active Substance: CYCLOSPORINE
     Dosage: 100 MG, UNK
     Route: 048
     Dates: start: 20120904
  40. ACTEIN [Concomitant]
     Dosage: 600 MG, BID
     Route: 048
     Dates: start: 20120812, end: 20120822
  41. AUGMENTINE [Concomitant]
     Active Substance: AMOXICILLIN\CLAVULANATE POTASSIUM
     Dosage: 1 DF, BID
     Route: 048
     Dates: start: 20120305, end: 20120308
  42. AUGMENTINE [Concomitant]
     Active Substance: AMOXICILLIN\CLAVULANATE POTASSIUM
     Dosage: 1 DF, BID
     Route: 048
     Dates: start: 20120712, end: 20120721
  43. AUGMENTINE [Concomitant]
     Active Substance: AMOXICILLIN\CLAVULANATE POTASSIUM
     Dosage: 1 DF, Q12H
     Route: 048
     Dates: start: 20140526, end: 20140604
  44. BROWN MIXTURE                      /01682301/ [Concomitant]
     Dosage: 15 ML, QID
     Route: 048
     Dates: start: 20121221, end: 20121227
  45. CONLIFU [Concomitant]
     Indication: INFECTION PROPHYLAXIS
     Dosage: UNK
     Route: 061
     Dates: start: 20120413, end: 20120719
  46. CONLIFU [Concomitant]
     Route: 061
     Dates: start: 20130118, end: 20130625
  47. LUCKYHEPA [Concomitant]
     Dosage: 1 DF, TID
     Route: 048
     Dates: start: 20120706, end: 20120719
  48. OXACILLIN [Concomitant]
     Active Substance: OXACILLIN SODIUM
     Indication: PRODUCT USED FOR UNKNOWN INDICATION
     Dosage: 2000 MG, Q4H
     Route: 042
     Dates: start: 20140708, end: 20140710
  49. PARMASON [Concomitant]
     Dosage: UNK
     Route: 048
     Dates: start: 20130917, end: 20140520
  50. RADI K [Concomitant]
     Dosage: 1785 MG, BID
     Route: 048
     Dates: start: 20140521, end: 20140525
  51. RADI K [Concomitant]
     Dosage: 1785 MG, TID
     Route: 048
     Dates: start: 20140525
  52. SLOW K [Concomitant]
     Active Substance: POTASSIUM CHLORIDE
     Indication: NUTRITIONAL SUPPLEMENTATION
     Dosage: 600 MG, BID
     Route: 048
     Dates: start: 20110610, end: 20130527
  53. ZOVIRAX [Concomitant]
     Active Substance: ACYCLOVIR
     Dosage: UNK
     Route: 065
     Dates: start: 20140706, end: 20140718
  54. NEORAL [Suspect]
     Active Substance: CYCLOSPORINE
     Dosage: 100 MG, UNK
     Route: 048
     Dates: start: 20111018
  55. ACTEIN [Concomitant]
     Indication: PRODUCT USED FOR UNKNOWN INDICATION
     Dosage: 600 MG, QD
     Route: 048
     Dates: start: 20111204, end: 20111215
  56. AUGCIN [Concomitant]
     Dosage: 1 DF, Q12H
     Route: 042
     Dates: start: 20120305, end: 20120305
  57. BROWN MIXTURE                      /01682301/ [Concomitant]
     Dosage: 15 ML, QID
     Route: 048
     Dates: start: 20120810, end: 20120822
  58. BROWN MIXTURE                      /01682301/ [Concomitant]
     Dosage: 5 ML, QID
     Route: 048
     Dates: start: 20140422, end: 20140428
  59. CONCOR [Concomitant]
     Active Substance: BISOPROLOL FUMARATE
     Indication: HYPERTENSION
     Dosage: 1.25 MG, BID
     Route: 048
     Dates: start: 20120417, end: 20120521
  60. CONCOR [Concomitant]
     Active Substance: BISOPROLOL FUMARATE
     Dosage: 2.5 MG, BID
     Route: 048
     Dates: start: 20120522, end: 20120719
  61. CONCOR [Concomitant]
     Active Substance: BISOPROLOL FUMARATE
     Dosage: 1.25 MG, QD
     Route: 048
     Dates: start: 20120720, end: 20130624
  62. FINSKA [Concomitant]
     Indication: PRODUCT USED FOR UNKNOWN INDICATION
     Dosage: 1 DF, BID
     Route: 048
     Dates: start: 20111204, end: 20111207
  63. FINSKA [Concomitant]
     Dosage: 1 DF, QD
     Route: 048
     Dates: start: 20111208, end: 20111215
  64. KENTAMIN [Concomitant]
     Dosage: 1 DF, BID
     Route: 048
     Dates: start: 20120424, end: 20120903
  65. LUCKYHEPA [Concomitant]
     Dosage: 1 DF, BID
     Route: 048
     Dates: start: 20120720, end: 20121220
  66. PARMASON [Concomitant]
     Dosage: UNK
     Route: 049
     Dates: start: 20140805
  67. RADI K [Concomitant]
     Indication: NUTRITIONAL SUPPLEMENTATION
     Dosage: 595 MG, BID
     Route: 048
     Dates: start: 20130528, end: 20140521
  68. ULTRACET [Concomitant]
     Active Substance: ACETAMINOPHEN\TRAMADOL HYDROCHLORIDE
     Indication: PRODUCT USED FOR UNKNOWN INDICATION
     Dosage: 1 DF, Q8H
     Route: 048
     Dates: start: 20120305, end: 20120317
  69. AUGCIN [Concomitant]
     Dosage: 1 DF, Q12H
     Route: 042
     Dates: start: 20120308, end: 20120311
  70. AUGCIN [Concomitant]
     Dosage: 1 DF, Q8H
     Route: 042
     Dates: start: 20120708, end: 20120712
  71. BROEN-C [Concomitant]
     Indication: PRODUCT USED FOR UNKNOWN INDICATION
     Dosage: 1 DF, TID
     Route: 048
     Dates: start: 20120812, end: 20120822
  72. CEFLEXIN [Concomitant]
     Indication: INFECTION PROPHYLAXIS
     Dosage: 500 MG, TID
     Route: 048
     Dates: start: 20110908, end: 20110909
  73. CRAVIT [Concomitant]
     Active Substance: LEVOFLOXACIN
     Indication: PRODUCT USED FOR UNKNOWN INDICATION
     Dosage: 750 MG, QD
     Route: 048
     Dates: start: 20120815, end: 20120828
  74. CRESTOR [Concomitant]
     Active Substance: ROSUVASTATIN CALCIUM
     Indication: HYPERLIPIDAEMIA
     Dosage: 5 MG, QD
     Route: 048
     Dates: start: 20110907, end: 20110919
  75. DEXALTIN [Concomitant]
     Active Substance: DEXAMETHASONE
     Dosage: UNK
     Route: 061
     Dates: start: 20121026, end: 20121122
  76. LUCKYHEPA [Concomitant]
     Dosage: 1 DF, QD
     Route: 048
     Dates: start: 20110910, end: 20120705
  77. MOBICAM//MELOXICAM [Concomitant]
     Indication: PRODUCT USED FOR UNKNOWN INDICATION
     Dosage: 7.5 MG, PRN
     Route: 048
     Dates: start: 20120709, end: 20120709
  78. MUCOSOLVAN [Concomitant]
     Active Substance: AMBROXOL\CLENBUTEROL
     Indication: PRODUCT USED FOR UNKNOWN INDICATION
     Dosage: 30 MG, TID
     Route: 048
     Dates: start: 20120812, end: 20120820
  79. NOGOUT [Concomitant]
     Indication: HYPERURICAEMIA
     Dosage: 100 MG, QD
     Route: 048
     Dates: start: 20110104
  80. PARMASON [Concomitant]
     Dosage: UNK
     Route: 049
     Dates: start: 20120904, end: 20121025
  81. ZOVIRAX [Concomitant]
     Active Substance: ACYCLOVIR
     Indication: PRODUCT USED FOR UNKNOWN INDICATION
     Dosage: 500 MG, Q8H
     Route: 042
     Dates: start: 20140708, end: 20140708
  82. AUGCIN [Concomitant]
     Dosage: 1000 MG, Q8H
     Route: 042
     Dates: start: 20120416, end: 20120419
  83. AUGMENTINE [Concomitant]
     Active Substance: AMOXICILLIN\CLAVULANATE POTASSIUM
     Dosage: 1 DF, BID
     Route: 048
     Dates: start: 20120311, end: 20120317
  84. BOKEY [Concomitant]
     Indication: HYPERTENSIVE HEART DISEASE
     Dosage: 100 MG, QD
     Route: 048
     Dates: start: 20110410
  85. BROWN MIXTURE                      /01682301/ [Concomitant]
     Dosage: 10 ML, QN
     Route: 048
     Dates: start: 20111207, end: 20111215
  86. DEXALTIN [Concomitant]
     Active Substance: DEXAMETHASONE
     Indication: PRODUCT USED FOR UNKNOWN INDICATION
     Route: 061
     Dates: start: 20120413, end: 20120427
  87. DIOVAN [Concomitant]
     Active Substance: VALSARTAN
     Indication: HYPERTENSION
     Dosage: 160 MG, QD
     Route: 048
     Dates: start: 20120424, end: 20120618
  88. KENTAMIN [Concomitant]
     Indication: NUTRITIONAL SUPPLEMENTATION
     Dosage: 1 DF, TID
     Route: 048
     Dates: start: 20120416, end: 20120423
  89. NASONEX [Concomitant]
     Active Substance: MOMETASONE FUROATE
     Dosage: UNK
     Route: 065
     Dates: start: 20140422, end: 20140429

REACTIONS (4)
  - Dizziness [Unknown]
  - Hearing impaired [Unknown]
  - Otorrhoea [Unknown]
  - Otitis media chronic [Recovered/Resolved]

NARRATIVE: CASE EVENT DATE: 20120705
